FAERS Safety Report 7657718-7 (Version None)
Quarter: 2011Q3

REPORT INFORMATION
  Report Type: 
  Country: None (occurrence: None)
  Receive Date: 20110804
  Receipt Date: 20110726
  Transmission Date: 20111222
  Serious: Yes (Other)
  Sender: FDA-Public Use
  Company Number: US-ABBOTT-11P-163-0842091-00

PATIENT
  Age: 51 Year
  Sex: Female

DRUGS (4)
  1. HYDROCODONE [Concomitant]
     Indication: RHEUMATOID ARTHRITIS
     Dosage: AT BEDTIME
  2. PREDNISONE [Concomitant]
     Indication: PRODUCT USED FOR UNKNOWN INDICATION
  3. HUMIRA [Suspect]
     Indication: RHEUMATOID ARTHRITIS
     Dates: start: 20091001
  4. DIAZEPAM [Concomitant]
     Indication: PRODUCT USED FOR UNKNOWN INDICATION
     Dosage: AT BEDTIME

REACTIONS (8)
  - FALL [None]
  - ERYTHEMA [None]
  - NODULE [None]
  - NECK PAIN [None]
  - PRURITUS GENERALISED [None]
  - INTERVERTEBRAL DISC DISORDER [None]
  - NECK INJURY [None]
  - PRURITUS [None]
